FAERS Safety Report 6581674-6 (Version None)
Quarter: 2010Q1

REPORT INFORMATION
  Report Type: 
  Country: None (occurrence: None)
  Receive Date: 20100215
  Receipt Date: 20100205
  Transmission Date: 20100710
  Serious: Yes (Hospitalization)
  Sender: FDA-Public Use
  Company Number: US-ABBOTT-10P-163-0624662-00

PATIENT
  Sex: Female
  Weight: 68.1 kg

DRUGS (8)
  1. HUMIRA [Suspect]
     Indication: RHEUMATOID ARTHRITIS
     Route: 058
     Dates: start: 20090501, end: 20091101
  2. PNEUMOCOCCAL VACCINE [Suspect]
     Indication: PNEUMONIA
     Dates: start: 20091029, end: 20091029
  3. PNEUMOCOCCAL VACCINE [Suspect]
     Indication: PROPHYLAXIS
  4. METHOTREXATE [Suspect]
     Indication: RHEUMATOID ARTHRITIS
  5. METHOTREXATE [Concomitant]
     Route: 048
     Dates: start: 20100101
  6. METHOTREXATE [Concomitant]
     Route: 048
     Dates: end: 20091101
  7. MEDROL [Concomitant]
     Indication: RHEUMATOID ARTHRITIS
     Dates: start: 20100101
  8. MEDROL [Concomitant]
     Dosage: DOSE UNKNOWN
     Dates: end: 20091101

REACTIONS (4)
  - ASTHENIA [None]
  - PNEUMONIA [None]
  - PULMONARY OEDEMA [None]
  - VIRAL INFECTION [None]
